FAERS Safety Report 11334413 (Version 1)
Quarter: 2015Q3

REPORT INFORMATION
  Report Type: Other
  Country: IL (occurrence: IL)
  Receive Date: 20150804
  Receipt Date: 20150804
  Transmission Date: 20151125
  Serious: Yes (Death, Hospitalization)
  Sender: FDA-Public Use
  Company Number: IL-DEXPHARM-20151007

PATIENT
  Age: 84 Year
  Sex: Female

DRUGS (5)
  1. ENALADEX [Interacting]
     Active Substance: ENALAPRIL MALEATE
  2. THEOPHYLLINE [Concomitant]
     Active Substance: THEOPHYLLINE ANHYDROUS
  3. OMEPRAZOLE. [Suspect]
     Active Substance: OMEPRAZOLE
  4. PREDNISONE. [Concomitant]
     Active Substance: PREDNISONE
  5. METHOTREXATE [Interacting]
     Active Substance: METHOTREXATE
     Indication: RHEUMATOID ARTHRITIS

REACTIONS (3)
  - Pancytopenia [Fatal]
  - Drug interaction [Unknown]
  - Mucosal inflammation [Unknown]
